APPROVED DRUG PRODUCT: INDOMETHACIN
Active Ingredient: INDOMETHACIN
Strength: 50MG
Dosage Form/Route: CAPSULE;ORAL
Application: N018806 | Product #002
Applicant: PARKE DAVIS DIV WARNER LAMBERT CO
Approved: Nov 23, 1984 | RLD: No | RS: No | Type: DISCN